FAERS Safety Report 13993239 (Version 3)
Quarter: 2019Q2

REPORT INFORMATION
  Report Type: Report from Study
  Country: DE (occurrence: DE)
  Receive Date: 20170920
  Receipt Date: 20190531
  Transmission Date: 20190711
  Serious: Yes (Hospitalization)
  Sender: FDA-Public Use
  Company Number: DE-UCBSA-2017036613

PATIENT
  Age: 44 Year
  Sex: Male
  Weight: 83 kg

DRUGS (1)
  1. CERTOLIZUMAB PEGOL VS PLACEBO [Suspect]
     Active Substance: CERTOLIZUMAB PEGOL
     Indication: AXIAL SPONDYLOARTHRITIS
     Dosage: 200 MG, EV 2 WEEKS(QOW)
     Route: 058
     Dates: start: 20160816, end: 20170704

REACTIONS (1)
  - False positive tuberculosis test [Recovered/Resolved]

NARRATIVE: CASE EVENT DATE: 20170718
